FAERS Safety Report 22245225 (Version 1)
Quarter: 2023Q2

REPORT INFORMATION
  Report Type: Spontaneous
  Country: DE (occurrence: DE)
  Receive Date: 20230424
  Receipt Date: 20230424
  Transmission Date: 20230721
  Serious: Yes (Death, Hospitalization, Other)
  Sender: FDA-Public Use
  Company Number: DE-STRIDES ARCOLAB LIMITED-2023SP005715

PATIENT
  Age: 11 Year
  Sex: Male

DRUGS (27)
  1. CYCLOSPORINE [Suspect]
     Active Substance: CYCLOSPORINE
     Indication: Prophylaxis against graft versus host disease
     Dosage: UNK
     Route: 065
  2. CYCLOSPORINE [Suspect]
     Active Substance: CYCLOSPORINE
     Indication: Chronic graft versus host disease in skin
     Dosage: UNK
     Route: 065
  3. CYCLOSPORINE [Suspect]
     Active Substance: CYCLOSPORINE
     Indication: Chronic graft versus host disease in intestine
  4. CYCLOSPORINE [Suspect]
     Active Substance: CYCLOSPORINE
     Indication: Chronic graft versus host disease in liver
  5. MYCOPHENOLATE MOFETIL [Suspect]
     Active Substance: MYCOPHENOLATE MOFETIL
     Indication: Prophylaxis against graft versus host disease
     Dosage: UNK
     Route: 065
  6. MYCOPHENOLATE MOFETIL [Suspect]
     Active Substance: MYCOPHENOLATE MOFETIL
     Indication: Chronic graft versus host disease in skin
     Dosage: UNK
     Route: 065
  7. MYCOPHENOLATE MOFETIL [Suspect]
     Active Substance: MYCOPHENOLATE MOFETIL
     Indication: Chronic graft versus host disease in intestine
  8. MYCOPHENOLATE MOFETIL [Suspect]
     Active Substance: MYCOPHENOLATE MOFETIL
     Indication: Chronic graft versus host disease in liver
  9. PREDNISOLONE [Suspect]
     Active Substance: PREDNISOLONE
     Indication: Prophylaxis against graft versus host disease
     Dosage: UNK (PREDNISONE)
     Route: 065
  10. PREDNISOLONE [Suspect]
     Active Substance: PREDNISOLONE
     Indication: Chronic graft versus host disease in skin
     Dosage: UNK (PREDNISOLONE)
     Route: 065
  11. PREDNISOLONE [Suspect]
     Active Substance: PREDNISOLONE
     Indication: Chronic graft versus host disease in intestine
  12. PREDNISOLONE [Suspect]
     Active Substance: PREDNISOLONE
     Indication: Chronic graft versus host disease in liver
  13. METHOTREXATE [Suspect]
     Active Substance: METHOTREXATE
     Indication: Chronic graft versus host disease in skin
     Dosage: UNK
     Route: 065
  14. METHOTREXATE [Suspect]
     Active Substance: METHOTREXATE
     Indication: Chronic graft versus host disease in intestine
  15. METHOTREXATE [Suspect]
     Active Substance: METHOTREXATE
     Indication: Chronic graft versus host disease in liver
  16. FLUDARABINE [Suspect]
     Active Substance: FLUDARABINE PHOSPHATE
     Indication: Prophylaxis against graft versus host disease
     Dosage: UNK
     Route: 065
  17. FLUDARABINE [Suspect]
     Active Substance: FLUDARABINE PHOSPHATE
     Indication: Bone marrow conditioning regimen
  18. BUSULFAN [Suspect]
     Active Substance: BUSULFAN
     Indication: Prophylaxis against graft versus host disease
     Dosage: UNK
     Route: 042
  19. BUSULFAN [Suspect]
     Active Substance: BUSULFAN
     Indication: Bone marrow conditioning regimen
  20. ALEMTUZUMAB [Suspect]
     Active Substance: ALEMTUZUMAB
     Indication: Prophylaxis against graft versus host disease
     Dosage: UNK
     Route: 065
  21. ALEMTUZUMAB [Suspect]
     Active Substance: ALEMTUZUMAB
     Indication: Bone marrow conditioning regimen
  22. BUDESONIDE [Suspect]
     Active Substance: BUDESONIDE
     Indication: Chronic graft versus host disease in skin
     Dosage: UNK
     Route: 065
  23. BUDESONIDE [Suspect]
     Active Substance: BUDESONIDE
     Indication: Chronic graft versus host disease in intestine
  24. BUDESONIDE [Suspect]
     Active Substance: BUDESONIDE
     Indication: Chronic graft versus host disease in liver
  25. IMATINIB [Suspect]
     Active Substance: IMATINIB
     Indication: Chronic graft versus host disease in skin
     Dosage: UNK
     Route: 065
  26. IMATINIB [Suspect]
     Active Substance: IMATINIB
     Indication: Chronic graft versus host disease in intestine
  27. IMATINIB [Suspect]
     Active Substance: IMATINIB
     Indication: Chronic graft versus host disease in liver

REACTIONS (14)
  - Pulmonary haemorrhage [Fatal]
  - Aspergillus infection [Fatal]
  - Bronchopulmonary aspergillosis [Fatal]
  - Candida infection [Unknown]
  - Staphylococcal infection [Unknown]
  - Lactobacillus infection [Unknown]
  - BK virus infection [Unknown]
  - Adenovirus infection [Unknown]
  - Acute graft versus host disease in skin [Unknown]
  - Chronic graft versus host disease in skin [Unknown]
  - Chronic graft versus host disease in intestine [Unknown]
  - Chronic graft versus host disease in liver [Unknown]
  - Transplant failure [Unknown]
  - Off label use [Unknown]
